FAERS Safety Report 10570877 (Version 3)
Quarter: 2016Q2

REPORT INFORMATION
  Report Type: Spontaneous
  Country: US (occurrence: US)
  Receive Date: 20141107
  Receipt Date: 20160429
  Transmission Date: 20160815
  Serious: Yes (Other)
  Sender: FDA-Public Use
  Company Number: US-BAYER-2014-164496

PATIENT
  Age: 28 Year
  Sex: Female
  Weight: 72.56 kg

DRUGS (4)
  1. MIRENA [Suspect]
     Active Substance: LEVONORGESTREL
     Indication: CONTRACEPTION
     Dosage: 20 MCG/24HR, CONT
     Route: 015
     Dates: start: 200603, end: 2012
  2. MIRENA [Suspect]
     Active Substance: LEVONORGESTREL
     Indication: MENORRHAGIA
     Dosage: 20 MCG/24HR, CONT
     Route: 015
     Dates: start: 201202, end: 201210
  3. MIRENA [Suspect]
     Active Substance: LEVONORGESTREL
     Indication: CONTRACEPTION
     Dosage: 20 MCG/24HR, CONT
     Route: 015
     Dates: start: 20130205
  4. IBUPROFEN. [Concomitant]
     Active Substance: IBUPROFEN

REACTIONS (6)
  - Pain [None]
  - Device issue [None]
  - Uterine leiomyoma [None]
  - Uterine haemorrhage [None]
  - Device dislocation [None]
  - Device difficult to use [None]

NARRATIVE: CASE EVENT DATE: 200603
